FAERS Safety Report 8299836-9 (Version None)
Quarter: 2012Q2

REPORT INFORMATION
  Report Type: 
  Country: None (occurrence: None)
  Receive Date: 20120419
  Receipt Date: 20120416
  Transmission Date: 20120825
  Serious: Yes (Hospitalization)
  Sender: FDA-Public Use
  Company Number: IT-BAXTER-2012BAX001307

PATIENT
  Sex: Female

DRUGS (2)
  1. CYCLOPHOSPHAMIDE [Suspect]
     Indication: BREAST CANCER
     Route: 042
     Dates: start: 20111103, end: 20111103
  2. TAXOTERE [Suspect]
     Indication: BREAST CANCER
     Dosage: 120 MG FOR 1 MONTH
     Route: 042
     Dates: start: 20111103

REACTIONS (2)
  - FEBRILE NEUTROPENIA [None]
  - COUGH [None]
